FAERS Safety Report 8282499-6 (Version None)
Quarter: 2012Q2

REPORT INFORMATION
  Report Type: 
  Country: None (occurrence: None)
  Receive Date: 20120413
  Receipt Date: 20120404
  Transmission Date: 20120825
  Serious: Yes (Hospitalization, Other)
  Sender: FDA-Public Use
  Company Number: CA-JNJFOC-20101105953

PATIENT
  Sex: Female
  Weight: 52 kg

DRUGS (3)
  1. REMICADE [Suspect]
     Route: 042
     Dates: start: 20091001
  2. REMICADE [Suspect]
     Dosage: DOSE= 2 VIALS
     Route: 042
     Dates: start: 20110401
  3. REMICADE [Suspect]
     Indication: CROHN'S DISEASE
     Route: 042

REACTIONS (2)
  - INFUSION RELATED REACTION [None]
  - BREAST CANCER [None]
